FAERS Safety Report 13096876 (Version 1)
Quarter: 2017Q1

REPORT INFORMATION
  Report Type: Spontaneous
  Country: US (occurrence: US)
  Receive Date: 20170106
  Receipt Date: 20170106
  Transmission Date: 20170428
  Serious: Yes (Life-Threatening)
  Sender: FDA-Public Use
  Company Number: None

PATIENT
  Age: 58 Year
  Sex: Female
  Weight: 79.5 kg

DRUGS (2)
  1. IOHEXOL [Suspect]
     Active Substance: IOHEXOL
     Indication: COMPUTERISED TOMOGRAM PELVIS
     Dosage: INTRAVENOUS (NOT OTHERWISE SPECIFIED)??OTHER FREQUENCY:ONCE;?
     Route: 042
     Dates: start: 20161222, end: 20161222
  2. IOHEXOL [Suspect]
     Active Substance: IOHEXOL
     Indication: COMPUTERISED TOMOGRAM ABDOMEN
     Dosage: INTRAVENOUS (NOT OTHERWISE SPECIFIED)??OTHER FREQUENCY:ONCE;?
     Route: 042
     Dates: start: 20161222, end: 20161222

REACTIONS (5)
  - Dyspnoea [None]
  - Flushing [None]
  - Oxygen saturation decreased [None]
  - Peripheral swelling [None]
  - Throat irritation [None]

NARRATIVE: CASE EVENT DATE: 20161222
